FAERS Safety Report 8210523-5 (Version None)
Quarter: 2012Q1

REPORT INFORMATION
  Report Type: 
  Country: None (occurrence: None)
  Receive Date: 20120314
  Receipt Date: 20120110
  Transmission Date: 20120608
  Serious: Yes (Other)
  Sender: FDA-Public Use
  Company Number: US-ASTRAZENECA-2012SE01748

PATIENT
  Sex: Male

DRUGS (20)
  1. SIMVASTATIN [Concomitant]
  2. LOSARTAN POTASSIUM [Concomitant]
  3. DOC Q LACE [Concomitant]
  4. ISOSORBIDE MONONITRATE [Concomitant]
  5. TOPROL-XL [Suspect]
     Route: 048
  6. SPIRONOLACTONE [Concomitant]
  7. METOLAZONE [Concomitant]
     Dosage: ONE ON MONDAY AND WEDNESDAY ONLY
  8. TAMSULOSIN HCL [Concomitant]
  9. POTASSIUM CL ER [Concomitant]
  10. LANTUS [Concomitant]
     Dosage: 50 UNITS PM
  11. MAGNESIUM OXIDE [Concomitant]
  12. FUROSEMIDE [Concomitant]
  13. HUMLIN [Concomitant]
     Dosage: 75 AM, 80 PM
  14. ASPIRIN [Concomitant]
  15. SERTRALINE HYDROCHLORIDE [Concomitant]
  16. DIGOXIN [Concomitant]
  17. PLAVIX [Concomitant]
  18. METFORMIN HCL [Concomitant]
  19. ZETIA [Concomitant]
  20. FAMOTIDINE [Concomitant]

REACTIONS (6)
  - MYOCARDIAL INFARCTION [None]
  - OEDEMA PERIPHERAL [None]
  - DIABETES MELLITUS [None]
  - CHOLELITHIASIS [None]
  - CARDIAC FAILURE CONGESTIVE [None]
  - LIVER INJURY [None]
